FAERS Safety Report 7635957-9 (Version None)
Quarter: 2011Q3

REPORT INFORMATION
  Report Type: 
  Country: None (occurrence: None)
  Receive Date: 20110726
  Receipt Date: 20110712
  Transmission Date: 20111222
  Serious: Yes (Other)
  Sender: FDA-Public Use
  Company Number: US-BAYER-2011-060912

PATIENT
  Sex: Female

DRUGS (4)
  1. ADVIL [Suspect]
     Indication: BACK PAIN
  2. GABAPENTIN [Suspect]
     Indication: BACK PAIN
     Dosage: 600 MG, QID
     Dates: start: 20110501
  3. VICODIN [Suspect]
     Indication: BACK PAIN
  4. ALEVE (CAPLET) [Suspect]

REACTIONS (6)
  - MAJOR DEPRESSION [None]
  - AGGRESSION [None]
  - DEPRESSION SUICIDAL [None]
  - SCREAMING [None]
  - THINKING ABNORMAL [None]
  - MOOD SWINGS [None]
